FAERS Safety Report 4794152-1 (Version None)
Quarter: 2005Q4

REPORT INFORMATION
  Report Type: 
  Country: None (occurrence: None)
  Receive Date: 20051011
  Receipt Date: 20050802
  Transmission Date: 20060501
  Serious: Yes (Hospitalization, Other)
  Sender: FDA-Public Use
  Company Number: US-MERCK-0508USA00509

PATIENT
  Age: 68 Year
  Sex: Female

DRUGS (3)
  1. VIOXX [Suspect]
     Route: 048
     Dates: start: 20010501
  2. ZOCOR [Concomitant]
     Route: 048
  3. ATENOLOL [Concomitant]
     Route: 065

REACTIONS (15)
  - ABDOMINAL PAIN UPPER [None]
  - ANGINA PECTORIS [None]
  - BARRETT'S OESOPHAGUS [None]
  - BLOOD PRESSURE INCREASED [None]
  - HEADACHE [None]
  - HYPERHIDROSIS [None]
  - HYPERLIPIDAEMIA [None]
  - HYPERTENSION [None]
  - HYPOAESTHESIA [None]
  - MYOCARDIAL INFARCTION [None]
  - NAUSEA [None]
  - NON-CARDIAC CHEST PAIN [None]
  - PRODUCTIVE COUGH [None]
  - RENAL ARTERY STENOSIS [None]
  - VOMITING [None]
